FAERS Safety Report 8247803-3 (Version None)
Quarter: 2012Q1

REPORT INFORMATION
  Report Type: 
  Country: None (occurrence: None)
  Receive Date: 20120330
  Receipt Date: 20120321
  Transmission Date: 20120608
  Serious: Yes (Other)
  Sender: FDA-Public Use
  Company Number: US-JNJFOC-20120311052

PATIENT
  Sex: Female
  Weight: 54.43 kg

DRUGS (2)
  1. ORTHO TRI-CYCLEN LO [Suspect]
     Route: 048
     Dates: start: 20110101, end: 20110101
  2. ORTHO TRI-CYCLEN LO [Suspect]
     Indication: CONTRACEPTION
     Route: 048
     Dates: start: 20100101, end: 20101101

REACTIONS (4)
  - PREGNANCY ON ORAL CONTRACEPTIVE [None]
  - INAPPROPRIATE SCHEDULE OF DRUG ADMINISTRATION [None]
  - MATERNAL EXPOSURE DURING PREGNANCY [None]
  - FOETAL DEATH [None]
